FAERS Safety Report 25129159 (Version 2)
Quarter: 2025Q4

REPORT INFORMATION
  Report Type: Spontaneous
  Country: EU (occurrence: EU)
  Receive Date: 20250327
  Receipt Date: 20251013
  Transmission Date: 20260117
  Serious: Yes (Other)
  Sender: NOVARTIS
  Company Number: EU-ROCHE-2575795

PATIENT
  Age: 41 Year
  Sex: Male
  Weight: 72 kg

DRUGS (25)
  1. KESIMPTA [Suspect]
     Active Substance: OFATUMUMAB
     Indication: Relapsing multiple sclerosis
     Dosage: UNK
     Route: 065
  2. OCREVUS [Suspect]
     Active Substance: OCRELIZUMAB
     Indication: Relapsing multiple sclerosis
     Dosage: 300 MG
     Route: 042
     Dates: start: 20180416, end: 20180430
  3. OCREVUS [Suspect]
     Active Substance: OCRELIZUMAB
     Dosage: 600 MG
     Route: 042
     Dates: start: 20181005, end: 20220302
  4. OCREVUS [Suspect]
     Active Substance: OCRELIZUMAB
     Dosage: 600 MG
     Route: 042
     Dates: start: 20181005, end: 20220302
  5. CHOLECALCIFEROL [Concomitant]
     Active Substance: CHOLECALCIFEROL
     Indication: Prophylaxis
     Dosage: 20000 IU, QW
     Route: 048
     Dates: start: 20170131
  6. PREDNISOLONE [Concomitant]
     Active Substance: PREDNISOLONE
     Indication: Prophylaxis
     Dosage: 100 MG, QD
     Route: 042
     Dates: start: 20180430, end: 20180430
  7. PREDNISOLONE [Concomitant]
     Active Substance: PREDNISOLONE
     Dosage: 100 MG, QD
     Route: 042
     Dates: start: 20181005, end: 20181005
  8. PREDNISOLONE [Concomitant]
     Active Substance: PREDNISOLONE
     Dosage: 100 MG, QD
     Route: 042
     Dates: start: 20190412, end: 20190412
  9. EBASTINE [Concomitant]
     Active Substance: EBASTINE
     Indication: Prophylaxis
     Dosage: 5 MG (0.5 A DAY)
     Route: 048
     Dates: start: 20180415, end: 20180417
  10. EBASTINE [Concomitant]
     Active Substance: EBASTINE
     Dosage: 5 MG (0.5 A DAY)
     Route: 048
     Dates: start: 20190411, end: 20190413
  11. EBASTINE [Concomitant]
     Active Substance: EBASTINE
     Dosage: 5 MG (0.5 A DAY)
     Route: 048
     Dates: start: 20181004, end: 20181006
  12. EBASTINE [Concomitant]
     Active Substance: EBASTINE
     Dosage: 5 MG (0.5 A DAY)
     Route: 048
     Dates: start: 20180429, end: 20180501
  13. RANITIDINE [Concomitant]
     Active Substance: RANITIDINE
     Indication: Prophylaxis
     Dosage: 300 MG (0.5 A DAY)
     Route: 048
     Dates: start: 20180415, end: 20180417
  14. RANITIDINE [Concomitant]
     Active Substance: RANITIDINE
     Dosage: 300 MG (0.5 A DAY)
     Route: 048
     Dates: start: 20190411, end: 20190413
  15. RANITIDINE [Concomitant]
     Active Substance: RANITIDINE
     Dosage: 300 MG (0.5 A DAY)
     Route: 048
     Dates: start: 20181004, end: 20181006
  16. RANITIDINE [Concomitant]
     Active Substance: RANITIDINE
     Dosage: 300 MG (0.5 A DAY)
     Route: 048
     Dates: start: 20180429, end: 20180501
  17. TIZANIDINE [Concomitant]
     Active Substance: TIZANIDINE
     Indication: Muscle spasticity
     Dosage: UNK
     Route: 048
     Dates: start: 202105
  18. RISPERIDONE [Concomitant]
     Active Substance: RISPERIDONE
     Indication: Depression
     Dosage: 4 MG, QD
     Route: 048
  19. TAMSULOSIN [Concomitant]
     Active Substance: TAMSULOSIN
     Indication: Product used for unknown indication
     Dosage: 0.4 MG, QD
     Route: 048
  20. BUPROPION HYDROCHLORIDE [Concomitant]
     Active Substance: BUPROPION HYDROCHLORIDE
     Indication: Depression
     Dosage: 300 MG, QD
     Route: 048
     Dates: start: 20180701
  21. GABAPENTIN [Concomitant]
     Active Substance: GABAPENTIN
     Indication: Muscle spasticity
     Dosage: UNK (0.33 A DAY)
     Route: 048
     Dates: start: 20220602
  22. BUPROPION [Concomitant]
     Active Substance: BUPROPION
     Indication: Depression
     Dosage: 300 MG, QD
     Route: 065
  23. HUMALOG [Concomitant]
     Active Substance: INSULIN LISPRO
     Indication: Type 1 diabetes mellitus
     Dosage: 100 IU
     Route: 058
  24. PREDNISOLONE [Concomitant]
     Active Substance: PREDNISOLONE
     Indication: Prophylaxis
     Dosage: 100 MG, QD
     Route: 042
     Dates: start: 20180416, end: 20180416
  25. DALFAMPRIDINE [Concomitant]
     Active Substance: DALFAMPRIDINE
     Indication: Product used for unknown indication
     Dosage: 10 MG, QD
     Route: 048
     Dates: start: 20170508

REACTIONS (4)
  - Pneumonia [Recovered/Resolved]
  - Influenza [Recovered/Resolved]
  - Pneumonia mycoplasmal [Recovering/Resolving]
  - Cough [Not Recovered/Not Resolved]

NARRATIVE: CASE EVENT DATE: 20200201
